FAERS Safety Report 24441394 (Version 2)
Quarter: 2024Q4

REPORT INFORMATION
  Report Type: Spontaneous
  Country: US (occurrence: US)
  Receive Date: 20241016
  Receipt Date: 20241017
  Transmission Date: 20250115
  Serious: No
  Sender: ROCHE
  Company Number: US-ROCHE-3483471

PATIENT
  Age: 39 Year
  Sex: Male
  Weight: 114.0 kg

DRUGS (2)
  1. HEMLIBRA [Suspect]
     Active Substance: EMICIZUMAB-KXWH
     Indication: Factor VIII deficiency
     Dosage: 60 MG/0.4ML
     Route: 058
     Dates: start: 201207
  2. HEMLIBRA [Suspect]
     Active Substance: EMICIZUMAB-KXWH
     Route: 058
     Dates: start: 20230105

REACTIONS (6)
  - Fall [Unknown]
  - Joint swelling [Unknown]
  - Contusion [Recovered/Resolved]
  - Swelling [Recovered/Resolved]
  - Haemorrhage [Unknown]
  - Ligament sprain [Unknown]

NARRATIVE: CASE EVENT DATE: 20240215
